FAERS Safety Report 9397374 (Version 2)
Quarter: 2013Q3

REPORT INFORMATION
  Report Type: Spontaneous
  Country: GB (occurrence: GB)
  Receive Date: 20130712
  Receipt Date: 20130724
  Transmission Date: 20140515
  Serious: Yes (Hospitalization)
  Sender: FDA-Public Use
  Company Number: PHHY2013GB071607

PATIENT
  Age: 63 Year
  Sex: Female

DRUGS (2)
  1. DICLOFENAC [Suspect]
     Indication: OSTEOARTHRITIS
  2. DICLOFENAC [Suspect]
     Dosage: 150 MG PER DAY

REACTIONS (8)
  - Large intestinal stenosis [Recovered/Resolved]
  - Intestinal diaphragm disease [Recovered/Resolved]
  - Ischaemia [Recovered/Resolved]
  - Inflammation [Recovered/Resolved]
  - Ulcer [Recovered/Resolved]
  - Abdominal distension [Recovered/Resolved]
  - Diverticulum intestinal [Recovered/Resolved]
  - Gastritis [Recovered/Resolved]
